FAERS Safety Report 8315806-6 (Version None)
Quarter: 2012Q2

REPORT INFORMATION
  Report Type: 
  Country: None (occurrence: None)
  Receive Date: 20120427
  Receipt Date: 20120419
  Transmission Date: 20120825
  Serious: Yes (Hospitalization)
  Sender: FDA-Public Use
  Company Number: BE-BRISTOL-MYERS SQUIBB COMPANY-16381493

PATIENT
  Age: 66 Year
  Sex: Male
  Weight: 80 kg

DRUGS (16)
  1. ZOCOR [Concomitant]
  2. POLYETHYLENE GLYCOL [Concomitant]
  3. BISOPROLOL FUMARATE [Concomitant]
     Indication: HYPERTENSION
     Dosage: INTERU ON 18JAN12
     Route: 065
     Dates: start: 20110322
  4. LORAZEPAM [Concomitant]
     Dates: start: 20110322
  5. GEMCITABINE HYDROCHLORIDE [Suspect]
     Indication: NON-SMALL CELL LUNG CANCER
     Dosage: INTER ON 18JAN12 RESTARTED ON 25JAN12
     Route: 042
     Dates: start: 20120111
  6. DURAGESIC-100 [Concomitant]
     Dates: start: 20111223
  7. VASEXTEN [Concomitant]
     Dates: start: 20110322
  8. ASPIRIN [Concomitant]
  9. ALDACTONE [Concomitant]
     Dates: start: 20110322
  10. PANTOPRAZOLE SODIUM [Concomitant]
  11. CARBOPLATIN [Suspect]
     Indication: NON-SMALL CELL LUNG CANCER
     Dosage: INTER ON 18JAN12 RESTARTED ON 25JAN12
     Route: 065
     Dates: start: 20120111
  12. ACETAMINOPHEN [Concomitant]
     Dates: start: 20120104
  13. FLUTICASONE PROPIONATE/SALMETEROL [Concomitant]
     Dates: start: 20110322
  14. REMERGON [Concomitant]
     Dates: start: 20111223
  15. PANTOPRAZOLE [Concomitant]
     Dates: start: 20110322
  16. TRAMADOL HCL [Concomitant]
     Dates: start: 20120104

REACTIONS (1)
  - HICCUPS [None]
